FAERS Safety Report 6788299-8 (Version None)
Quarter: 2010Q2

REPORT INFORMATION
  Report Type: 
  Country: None (occurrence: None)
  Receive Date: 20100623
  Receipt Date: 20080416
  Transmission Date: 20101027
  Serious: Yes (Other)
  Sender: FDA-Public Use
  Company Number: US-PFIZER INC-2008014952

PATIENT
  Age: 40 Year
  Sex: Female

DRUGS (1)
  1. GEODON [Suspect]
     Route: 048

REACTIONS (5)
  - HYPERSENSITIVITY [None]
  - SWELLING [None]
  - SWELLING FACE [None]
  - SWOLLEN TONGUE [None]
  - THROAT IRRITATION [None]
